FAERS Safety Report 23586758 (Version 1)
Quarter: 2024Q1

REPORT INFORMATION
  Report Type: Spontaneous
  Country: US (occurrence: US)
  Receive Date: 20240301
  Receipt Date: 20240301
  Transmission Date: 20240410
  Serious: No
  Sender: FDA-Public Use
  Company Number: US-PFIZER INC-PV202400028774

PATIENT
  Age: 71 Year
  Sex: Female

DRUGS (2)
  1. INLYTA [Suspect]
     Active Substance: AXITINIB
     Indication: Renal cancer
     Dosage: 2 MG, 2X/DAY
  2. INLYTA [Suspect]
     Active Substance: AXITINIB
     Dosage: 1 MG, 1X/DAY

REACTIONS (2)
  - Nasopharyngitis [Unknown]
  - Intentional product use issue [Unknown]
